FAERS Safety Report 4920728-4 (Version None)
Quarter: 2006Q1

REPORT INFORMATION
  Report Type: 
  Country: None (occurrence: None)
  Receive Date: 20060223
  Receipt Date: 20001012
  Transmission Date: 20060701
  Serious: Yes (Hospitalization)
  Sender: FDA-Public Use
  Company Number: US-BOEHRINGER INGELHEIM PHARMACEUTICALS, INC.-2000-DE-U0176

PATIENT
  Sex: Female
  Weight: 71.2 kg

DRUGS (10)
  1. PRAMIPEXOLE DIHYDROCHLORIDE [Suspect]
     Route: 048
     Dates: start: 19970520, end: 20001006
  2. SEROQUEL [Concomitant]
     Dates: start: 20001005
  3. SELEGILINE HCL [Concomitant]
     Dates: start: 19940901
  4. ASPIRIN [Concomitant]
     Dates: start: 19950101
  5. ESTROGENS CONJUGATED [Concomitant]
     Dates: start: 19960101
  6. IBUPROFEN [Concomitant]
     Dates: start: 19990405
  7. AMOXICILLIN [Concomitant]
     Dates: start: 19991022
  8. DITROPAN [Concomitant]
     Dates: start: 19990823
  9. PAXIL [Concomitant]
     Dates: start: 20000126
  10. METHIMAZOLE [Concomitant]
     Dates: start: 20000717

REACTIONS (3)
  - BRADYKINESIA [None]
  - PARKINSONISM [None]
  - TREATMENT NONCOMPLIANCE [None]
